FAERS Safety Report 9006825 (Version 2)
Quarter: 2013Q1

REPORT INFORMATION
  Report Type: Report from Study
  Country: US (occurrence: US)
  Receive Date: 20130110
  Receipt Date: 20130212
  Transmission Date: 20140127
  Serious: Yes (Hospitalization, Other)
  Sender: FDA-Public Use
  Company Number: US-NAPPMUNDI-USA-2013-0097404

PATIENT
  Age: 61 None
  Sex: Female

DRUGS (2)
  1. OXYCONTIN (NDA 22-272) [Suspect]
     Indication: PAIN
     Dosage: 160 MG, BID
     Route: 048
     Dates: start: 2012
  2. OXYCONTIN (NDA 22-272) [Suspect]
     Indication: MIGRAINE

REACTIONS (8)
  - Renal failure [Recovering/Resolving]
  - Myocardial infarction [Unknown]
  - Cerebrovascular accident [Unknown]
  - Pulmonary embolism [Unknown]
  - Renal cyst [Unknown]
  - Hyperlipidaemia [Unknown]
  - Urinary tract infection [Recovering/Resolving]
  - Dehydration [Recovering/Resolving]
